FAERS Safety Report 6825585-7 (Version None)
Quarter: 2010Q3

REPORT INFORMATION
  Report Type: 
  Country: None (occurrence: None)
  Receive Date: 20100708
  Receipt Date: 20070323
  Transmission Date: 20110219
  Serious: No
  Sender: FDA-Public Use
  Company Number: US-PFIZER INC-2006140206

PATIENT
  Sex: Female
  Weight: 63.96 kg

DRUGS (18)
  1. CHANTIX [Suspect]
     Indication: SMOKING CESSATION THERAPY
     Route: 048
     Dates: start: 20060801, end: 20061201
  2. CHANTIX [Suspect]
     Indication: TOBACCO ABUSE
  3. XANAX XR [Suspect]
     Indication: NERVOUSNESS
     Dosage: EVERYDAY
     Route: 048
     Dates: start: 20061114
  4. XANAX XR [Suspect]
     Indication: ANXIETY
  5. TOPROL-XL [Concomitant]
  6. ACCUPRIL [Concomitant]
  7. LIPITOR [Concomitant]
  8. ALPRAZOLAM [Concomitant]
  9. ZANTAC [Concomitant]
  10. FOSAMAX [Concomitant]
  11. MIRTAZAPINE [Concomitant]
  12. ASPIRIN [Concomitant]
  13. MULTI-VITAMINS [Concomitant]
  14. CALCIUM CARBONATE [Concomitant]
  15. FISH OIL [Concomitant]
  16. VITAMIN E [Concomitant]
  17. VITAMIN C [Concomitant]
  18. ALL OTHER THERAPEUTIC PRODUCTS [Concomitant]

REACTIONS (11)
  - ANXIETY [None]
  - DECREASED APPETITE [None]
  - DRUG INEFFECTIVE [None]
  - FEELING JITTERY [None]
  - INSOMNIA [None]
  - MIDDLE INSOMNIA [None]
  - NAUSEA [None]
  - NERVOUSNESS [None]
  - POLLAKIURIA [None]
  - TREMOR [None]
  - VOMITING [None]
